FAERS Safety Report 20292597 (Version 1)
Quarter: 2022Q1

REPORT INFORMATION
  Report Type: Report from Study
  Country: IT (occurrence: IT)
  Receive Date: 20220104
  Receipt Date: 20220104
  Transmission Date: 20220423
  Serious: Yes (Death, Other)
  Sender: FDA-Public Use
  Company Number: IT-JNJFOC-20211236495

PATIENT
  Age: 8 Year
  Sex: Male
  Weight: 17 kg

DRUGS (7)
  1. IBRUTINIB [Suspect]
     Active Substance: IBRUTINIB
     Indication: Chronic graft versus host disease
     Route: 048
     Dates: start: 20211112, end: 20211117
  2. IBRUTINIB [Suspect]
     Active Substance: IBRUTINIB
     Route: 048
     Dates: start: 20211027, end: 20211117
  3. PREDNISONE [Concomitant]
     Active Substance: PREDNISONE
     Indication: Chronic graft versus host disease
     Route: 048
     Dates: start: 2020, end: 20211127
  4. VORICONAZOLO FRESENIUS KABI [Concomitant]
     Indication: Antifungal prophylaxis
     Route: 048
     Dates: start: 202105, end: 20211127
  5. COTRIMOXAZOLE [Concomitant]
     Active Substance: SULFAMETHOXAZOLE\TRIMETHOPRIM
     Indication: Antifungal prophylaxis
     Dosage: 80-400MG FOR 2 DAYS?A WEEK
     Route: 048
     Dates: start: 2018, end: 20211117
  6. AZITHROMYCIN [Concomitant]
     Active Substance: AZITHROMYCIN
     Indication: Procoagulant therapy
     Route: 048
     Dates: start: 2020, end: 20211117
  7. MONTELUKAST [Concomitant]
     Active Substance: MONTELUKAST SODIUM
     Indication: Product used for unknown indication
     Route: 048
     Dates: start: 2020, end: 20211117

REACTIONS (4)
  - Pneumonitis aspiration [Fatal]
  - Oesophageal obstruction [Not Recovered/Not Resolved]
  - Off label use [Unknown]
  - Product use issue [Unknown]

NARRATIVE: CASE EVENT DATE: 20211117
